FAERS Safety Report 11220158 (Version 1)
Quarter: 2015Q2

REPORT INFORMATION
  Report Type: Report from Study
  Country: AU (occurrence: AU)
  Receive Date: 20150625
  Receipt Date: 20150625
  Transmission Date: 20150821
  Serious: Yes (Other)
  Sender: FDA-Public Use
  Company Number: AU-ABBVIE-15P-008-1410399-00

PATIENT
  Age: 37 Year
  Sex: Female

DRUGS (4)
  1. HUMIRA [Suspect]
     Active Substance: ADALIMUMAB
     Route: 058
     Dates: start: 20150331, end: 20150413
  2. HUMIRA [Suspect]
     Active Substance: ADALIMUMAB
     Route: 058
     Dates: start: 20150428, end: 20150602
  3. HUMIRA [Suspect]
     Active Substance: ADALIMUMAB
     Indication: HIDRADENITIS
     Route: 058
     Dates: start: 20150316, end: 20150330
  4. HUMIRA [Suspect]
     Active Substance: ADALIMUMAB
     Route: 058
     Dates: start: 20150414, end: 20150427

REACTIONS (19)
  - Rash [Recovering/Resolving]
  - Epistaxis [Unknown]
  - Tremor [Recovering/Resolving]
  - Burning sensation [Recovering/Resolving]
  - Headache [Recovering/Resolving]
  - Nausea [Recovering/Resolving]
  - Influenza like illness [Unknown]
  - Dizziness [Unknown]
  - Palpitations [Unknown]
  - Pruritus [Recovering/Resolving]
  - Adverse reaction [Unknown]
  - Chills [Unknown]
  - Burning sensation [Unknown]
  - Pruritus [Unknown]
  - Vomiting [Recovering/Resolving]
  - Feeling of body temperature change [Recovering/Resolving]
  - Hyperhidrosis [Unknown]
  - Dysstasia [Unknown]
  - Rash [Unknown]

NARRATIVE: CASE EVENT DATE: 20150608
